FAERS Safety Report 24441043 (Version 1)
Quarter: 2024Q4

REPORT INFORMATION
  Report Type: Report from Study
  Country: ZA (occurrence: ZA)
  Receive Date: 20241016
  Receipt Date: 20241016
  Transmission Date: 20250114
  Serious: Yes (Hospitalization)
  Sender: ALEXION PHARMACEUTICALS
  Company Number: ZA-AstraZeneca-CH-00721763A

PATIENT
  Age: 74 Year

DRUGS (34)
  1. BUDESONIDE\FORMOTEROL [Suspect]
     Active Substance: BUDESONIDE\FORMOTEROL
     Indication: Asthma
     Dosage: 160 MICROGRAM PER INHALATION
  2. BUDESONIDE\FORMOTEROL [Suspect]
     Active Substance: BUDESONIDE\FORMOTEROL
     Dosage: 160 MICROGRAM PER INHALATION
  3. BUDESONIDE\FORMOTEROL [Suspect]
     Active Substance: BUDESONIDE\FORMOTEROL
     Dosage: 160 MICROGRAM PER INHALATION
  4. BUDESONIDE\FORMOTEROL [Suspect]
     Active Substance: BUDESONIDE\FORMOTEROL
     Dosage: 160 MICROGRAM PER INHALATION
  5. LANSOPRAZOLE [Concomitant]
     Active Substance: LANSOPRAZOLE
     Indication: Ulcer
     Dosage: 30 MILLIGRAM
  6. LANSOPRAZOLE [Concomitant]
     Active Substance: LANSOPRAZOLE
     Dosage: 30 MILLIGRAM
  7. LANSOPRAZOLE [Concomitant]
     Active Substance: LANSOPRAZOLE
     Dosage: 30 MILLIGRAM
  8. LANSOPRAZOLE [Concomitant]
     Active Substance: LANSOPRAZOLE
     Dosage: 30 MILLIGRAM
  9. Sinucon [Concomitant]
  10. Sinucon [Concomitant]
  11. GLYCERIN ADULT [Concomitant]
     Active Substance: GLYCERIN
  12. GLYCERIN ADULT [Concomitant]
     Active Substance: GLYCERIN
  13. GLYCERIN ADULT [Concomitant]
     Active Substance: GLYCERIN
  14. GLYCERIN ADULT [Concomitant]
     Active Substance: GLYCERIN
  15. Lipogen [Concomitant]
     Dosage: 20 MILLIGRAM
  16. Lipogen [Concomitant]
     Dosage: 20 MILLIGRAM
  17. Lipogen [Concomitant]
     Dosage: 20 MILLIGRAM
  18. Lipogen [Concomitant]
     Dosage: 20 MILLIGRAM
  19. PREDATOR [Concomitant]
     Active Substance: LIDOCAINE HYDROCHLORIDE
     Dosage: 4 MILLIGRAM
  20. PREDATOR [Concomitant]
     Active Substance: LIDOCAINE HYDROCHLORIDE
     Dosage: 4 MILLIGRAM
  21. PREDATOR [Concomitant]
     Active Substance: LIDOCAINE HYDROCHLORIDE
     Dosage: 4 MILLIGRAM
  22. PREDATOR [Concomitant]
     Active Substance: LIDOCAINE HYDROCHLORIDE
     Dosage: 4 MILLIGRAM
  23. ECOTRIN [Concomitant]
     Active Substance: ASPIRIN
     Dosage: 81 MILLIGRAM
  24. ECOTRIN [Concomitant]
     Active Substance: ASPIRIN
     Dosage: 81 MILLIGRAM
  25. ECOTRIN [Concomitant]
     Active Substance: ASPIRIN
     Dosage: 81 MILLIGRAM
  26. ECOTRIN [Concomitant]
     Active Substance: ASPIRIN
     Dosage: 81 MILLIGRAM
  27. Uromax [Concomitant]
     Indication: Prostatomegaly
     Dosage: 0.4 MILLIGRAM
  28. Uromax [Concomitant]
     Dosage: 0.4 MILLIGRAM
  29. Uromax [Concomitant]
     Dosage: 0.4 MILLIGRAM
  30. Uromax [Concomitant]
     Dosage: 0.4 MILLIGRAM
  31. Coryx [Concomitant]
  32. Coryx [Concomitant]
  33. Coryx [Concomitant]
  34. Coryx [Concomitant]

REACTIONS (1)
  - Venous occlusion [Unknown]
